FAERS Safety Report 14959993 (Version 1)
Quarter: 2018Q2

REPORT INFORMATION
  Report Type: Report from Study
  Country: None (occurrence: US)
  Receive Date: 20180531
  Receipt Date: 20180531
  Transmission Date: 20180711
  Serious: Yes (Hospitalization)
  Sender: FDA-Public Use
  Company Number: US-ABBVIE-18P-163-2366979-00

PATIENT
  Sex: Male

DRUGS (1)
  1. MAVYRET [Suspect]
     Active Substance: GLECAPREVIR\PIBRENTASVIR
     Indication: HEPATITIS C
     Dosage: 100/40 MILLIGRAMS TABS WEEKLY PACK 21^S
     Route: 048
     Dates: start: 20170223

REACTIONS (3)
  - Vascular graft [Unknown]
  - Dehydration [Unknown]
  - Renal disorder [Unknown]
